FAERS Safety Report 7252037 (Version 4)
Quarter: 2013Q4

REPORT INFORMATION
  Report Type: Report from Study
  Country: US (occurrence: US)
  Receive Date: 20100121
  Receipt Date: 20131003
  Transmission Date: 20140711
  Serious: Yes (Hospitalization, Congenital Anomaly, Other)
  Sender: FDA-Public Use
  Company Number: US-AMGEN-US385970

PATIENT
  Age: 0 Day
  Sex: Male
  Weight: 1.5 kg

DRUGS (17)
  1. ETANERCEPT [Suspect]
     Indication: PRODUCT USED FOR UNKNOWN INDICATION
     Dosage: 50 MG, QWK
     Route: 064
     Dates: start: 20090704, end: 20091123
  2. PRENATAL VITAMINS [Concomitant]
     Dosage: UNK UNK, QD
     Route: 064
     Dates: start: 20090520, end: 20091224
  3. PREDNISONE [Concomitant]
     Dosage: 5 MG, QD
     Route: 064
     Dates: start: 20090520, end: 20091224
  4. VIVELLE [Concomitant]
     Dosage: UNK UNK, QD
     Route: 064
     Dates: start: 20090520, end: 20090729
  5. PROGESTERONE [Concomitant]
     Dosage: UNK UNK, QD
     Route: 064
     Dates: start: 20090531, end: 20090812
  6. TYLENOL [Concomitant]
     Dosage: UNK UNK, QMO
     Route: 064
     Dates: start: 20090601, end: 20091015
  7. TUMS [Concomitant]
     Dosage: UNK UNK, AS NECESSARY
     Route: 064
     Dates: start: 20090701, end: 20091228
  8. FIORICET [Concomitant]
     Dosage: UNK UNK, QD
     Route: 064
     Dates: start: 20090901, end: 20091013
  9. PERCOCET [Concomitant]
     Dosage: UNK UNK, QD
     Route: 064
     Dates: start: 20091014, end: 20091209
  10. PHENERGAN [Concomitant]
     Dosage: 25 MG, QD
     Route: 064
     Dates: start: 20091012, end: 20091209
  11. INFLUENZA VACCINE [Concomitant]
     Dosage: UNK
     Route: 064
     Dates: start: 20090928, end: 20090928
  12. BABY ASPIRIN [Concomitant]
     Dosage: UNK UNK, QD
     Route: 064
     Dates: start: 20090902, end: 20091224
  13. PRILOSEC [Concomitant]
     Dosage: UNK UNK, QD
     Route: 064
     Dates: start: 20091008, end: 20091224
  14. DEMEROL [Concomitant]
     Dosage: UNK UNK, QD
     Route: 064
     Dates: start: 20091014, end: 20091109
  15. LOVENOX [Concomitant]
     Dosage: UNK UNK, QD
     Route: 064
     Dates: start: 20091201, end: 20091223
  16. ANTIBIOTICS [Concomitant]
     Dosage: UNK
     Route: 064
     Dates: start: 20091201, end: 20091205
  17. CAFFEINE [Concomitant]
     Dosage: UNK
     Dates: start: 20090520

REACTIONS (4)
  - Premature baby [Unknown]
  - Apnoea neonatal [Unknown]
  - Jaundice neonatal [Unknown]
  - Cleft palate [Unknown]
